FAERS Safety Report 9474240 (Version 2)
Quarter: 2013Q3

REPORT INFORMATION
  Report Type: Spontaneous
  Country: US (occurrence: US)
  Receive Date: 20130823
  Receipt Date: 20130823
  Transmission Date: 20140515
  Serious: Yes (Other)
  Sender: FDA-Public Use
  Company Number: US-BRISTOL-MYERS SQUIBB COMPANY-18576561

PATIENT
  Age: 79 Year
  Sex: Female
  Weight: 95.24 kg

DRUGS (4)
  1. BYDUREON [Suspect]
     Indication: TYPE 2 DIABETES MELLITUS
     Route: 058
     Dates: start: 20121214
  2. EXENATIDE UNK STRENGTH PEN, DISPOSABLE DEVICE [Concomitant]
  3. SYNTHROID [Concomitant]
  4. LEVEMIR [Concomitant]
     Dosage: 1DF=40UNITS QAM/G0UNITS QPM

REACTIONS (5)
  - Tendon rupture [Unknown]
  - Blood glucose increased [Recovered/Resolved]
  - Macular hole [Recovered/Resolved]
  - Carpal tunnel syndrome [Recovered/Resolved]
  - Drug dose omission [Unknown]
